FAERS Safety Report 19808782 (Version 1)
Quarter: 2021Q3

REPORT INFORMATION
  Report Type: Spontaneous
  Country: GR (occurrence: GR)
  Receive Date: 20210908
  Receipt Date: 20210908
  Transmission Date: 20211014
  Serious: Yes (Other)
  Sender: FDA-Public Use
  Company Number: GR-MYLANLABS-2021M1058941

PATIENT
  Age: 89 Year

DRUGS (2)
  1. METHOTREXATE. [Suspect]
     Active Substance: METHOTREXATE
     Indication: PSORIASIS
     Dosage: SYSTEMIC TREATMENT
  2. METHOTREXATE. [Suspect]
     Active Substance: METHOTREXATE
     Dosage: SYSTEMIC TREATMENT
     Route: 061

REACTIONS (1)
  - Drug ineffective [Unknown]
